FAERS Safety Report 19235609 (Version 2)
Quarter: 2021Q2

REPORT INFORMATION
  Report Type: Spontaneous
  Country: IL (occurrence: IL)
  Receive Date: 20210510
  Receipt Date: 20210512
  Transmission Date: 20210717
  Serious: Yes (Death, Hospitalization)
  Sender: FDA-Public Use
  Company Number: IL-ROCHE-2825748

PATIENT
  Sex: Male

DRUGS (3)
  1. AVASTIN [Suspect]
     Active Substance: BEVACIZUMAB
     Indication: HEPATOCELLULAR CARCINOMA
     Dosage: 100 MG 4ML VIAL FR
     Route: 065
     Dates: start: 20200408
  2. AVASTIN [Suspect]
     Active Substance: BEVACIZUMAB
     Dosage: 400 MG 16 ML FREE
     Route: 065
  3. TECENTRIQ [Suspect]
     Active Substance: ATEZOLIZUMAB
     Indication: HEPATOCELLULAR CARCINOMA
     Dosage: 1200MG/20 MG
     Route: 041
     Dates: start: 20200408

REACTIONS (1)
  - Death [Fatal]
